FAERS Safety Report 7010292-0 (Version None)
Quarter: 2010Q3

REPORT INFORMATION
  Report Type: 
  Country: None (occurrence: None)
  Receive Date: 20100923
  Receipt Date: 20100920
  Transmission Date: 20110219
  Serious: Yes (Other)
  Sender: FDA-Public Use
  Company Number: A0882089A

PATIENT
  Age: 55 Year
  Sex: Male

DRUGS (8)
  1. ADVAIR DISKUS 100/50 [Suspect]
     Indication: ASTHMA
     Dosage: 1PUFF TWICE PER DAY
     Route: 065
     Dates: start: 20080101, end: 20100701
  2. QVAR 40 [Suspect]
     Dates: start: 20100101
  3. SYMBICORT [Suspect]
     Dates: start: 20100101
  4. PAXIL [Concomitant]
  5. ATENOLOL [Concomitant]
  6. PROAIR HFA [Concomitant]
  7. MILK THISTLE [Concomitant]
  8. LOVAZA [Concomitant]

REACTIONS (4)
  - APHASIA [None]
  - DYSPNOEA [None]
  - LUNG INFECTION [None]
  - THERAPEUTIC RESPONSE DECREASED [None]
